FAERS Safety Report 6370292-0 (Version None)
Quarter: 2009Q3

REPORT INFORMATION
  Report Type: 
  Country: None (occurrence: None)
  Receive Date: 20090923
  Receipt Date: 20090914
  Transmission Date: 20100115
  Serious: Yes (Hospitalization)
  Sender: FDA-Public Use
  Company Number: FR-AMGEN-US365173

PATIENT
  Sex: Male

DRUGS (15)
  1. ENBREL [Suspect]
     Indication: PSORIATIC ARTHROPATHY
     Dosage: UNKNOWN
     Route: 058
     Dates: end: 20090519
  2. HUMIRA [Suspect]
     Indication: PSORIATIC ARTHROPATHY
     Dosage: UNKNOWN
     Route: 058
     Dates: start: 20080101, end: 20090519
  3. CORTANCYL [Suspect]
     Indication: PSORIATIC ARTHROPATHY
     Dosage: UNKNOWN
     Route: 048
     Dates: start: 20040101, end: 20090501
  4. CORTANCYL [Suspect]
     Dosage: UNKNOWN
     Route: 048
     Dates: start: 20090501
  5. NOVATREX [Suspect]
     Route: 048
     Dates: start: 20040101, end: 20090519
  6. AMLODIPINE [Concomitant]
     Dosage: 10 MG TOTAL DAILY
  7. TRIATEC [Concomitant]
     Dosage: 10 MG TOTAL DAILY
  8. HYPERIUM [Concomitant]
     Dosage: UNKNOWN
     Route: 065
  9. JOSIR [Concomitant]
     Dosage: 0.4 MG TOTAL DAILY
  10. CACIT VITAMINE D3 [Concomitant]
  11. VAGOSTABYL [Concomitant]
     Dosage: 4 DOSES TOTAL DAILY
     Route: 048
  12. SPECIAFOLDINE [Concomitant]
     Dosage: 5 MG TOTAL DAILY
  13. DIFFU K [Concomitant]
     Dosage: UNKNOWN
     Route: 065
  14. ACETAMINOPHEN WITH PROPOXYPHENE HCL TAB [Concomitant]
     Dosage: UNKNOWN
     Route: 065
  15. PREVISCAN [Concomitant]
     Dosage: 20 MG TOTAL DAILY

REACTIONS (5)
  - EXTRADURAL ABSCESS [None]
  - INTERVERTEBRAL DISCITIS [None]
  - SPINAL CORD DISORDER [None]
  - STAPHYLOCOCCAL BACTERAEMIA [None]
  - URINARY TRACT INFECTION STAPHYLOCOCCAL [None]
